FAERS Safety Report 7712286-6 (Version None)
Quarter: 2011Q3

REPORT INFORMATION
  Report Type: 
  Country: None (occurrence: None)
  Receive Date: 20110826
  Receipt Date: 20110818
  Transmission Date: 20111222
  Serious: Yes (Other)
  Sender: FDA-Public Use
  Company Number: CA-AMGEN-CANSP2011030009

PATIENT
  Age: 55 Year
  Sex: Female
  Weight: 54.4 kg

DRUGS (4)
  1. CALCIUM W/VITAMIN D                /00188401/ [Concomitant]
     Dosage: UNK UNK, BID
  2. LEVAQUIN [Concomitant]
  3. METHOTREXATE [Concomitant]
     Dosage: UNK UNK, QWK
     Route: 048
  4. ENBREL [Suspect]
     Indication: RHEUMATOID ARTHRITIS
     Dosage: 50 MG, QWK
     Dates: start: 20110518

REACTIONS (7)
  - INJECTION SITE PAIN [None]
  - ASTHENIA [None]
  - MUSCULAR WEAKNESS [None]
  - PARAESTHESIA [None]
  - INSOMNIA [None]
  - MUSCULOSKELETAL PAIN [None]
  - DRUG INEFFECTIVE [None]
